FAERS Safety Report 16379625 (Version 1)
Quarter: 2019Q2

REPORT INFORMATION
  Report Type: Spontaneous
  Country: SK (occurrence: SK)
  Receive Date: 20190531
  Receipt Date: 20190531
  Transmission Date: 20190711
  Serious: Yes (Hospitalization, Disabling)
  Sender: FDA-Public Use
  Company Number: SK-MYLANLABS-2019M1050796

PATIENT
  Age: 60 Year
  Sex: Male

DRUGS (1)
  1. IBUPROFEN. [Suspect]
     Active Substance: IBUPROFEN
     Indication: PAIN
     Dosage: 4000 MILLIGRAM, TOTAL(10 X 400 MG)
     Route: 065

REACTIONS (3)
  - Duodenitis [Unknown]
  - Overdose [Unknown]
  - Gastrooesophageal reflux disease [Unknown]
